FAERS Safety Report 4365659-6 (Version None)
Quarter: 2004Q2

REPORT INFORMATION
  Report Type: 
  Country: None (occurrence: None)
  Receive Date: 20040521
  Receipt Date: 20040512
  Transmission Date: 20050107
  Serious: Yes (Hospitalization)
  Sender: FDA-Public Use
  Company Number: 2004213468KW

PATIENT
  Age: 75 Year
  Sex: Female

DRUGS (3)
  1. METRONIDAZOLE [Suspect]
     Indication: ANTIBACTERIAL PROPHYLAXIS
     Dosage: 500 MG, TID, IV
     Route: 042
     Dates: start: 19970601
  2. METRONIDAZOLE [Suspect]
     Indication: ANTIBACTERIAL PROPHYLAXIS
     Dosage: 500 MG, TID, IV
     Route: 042
  3. CEFTAZIDIME SODIUM [Concomitant]

REACTIONS (6)
  - ABSCESS INTESTINAL [None]
  - BACILLUS INFECTION [None]
  - BACTEROIDES INFECTION [None]
  - DIVERTICULUM [None]
  - PATHOGEN RESISTANCE [None]
  - WOUND INFECTION [None]
